FAERS Safety Report 5383226-2 (Version None)
Quarter: 2007Q3

REPORT INFORMATION
  Report Type: 
  Country: None (occurrence: None)
  Receive Date: 20070710
  Receipt Date: 20070627
  Transmission Date: 20080115
  Serious: Yes (Death, Hospitalization)
  Sender: FDA-Public Use
  Company Number: ZA-ELI_LILLY_AND_COMPANY-ZA200707000131

PATIENT
  Age: 43 Year
  Sex: Female

DRUGS (2)
  1. XIGRIS [Suspect]
     Dosage: UNK, UNKNOWN
     Route: 065
     Dates: start: 20041001, end: 20041004
  2. HEPARIN [Concomitant]
     Dosage: 5 ML (5ML=25000 INTERNATIONAL. ML), UNKNOWN
     Route: 065
     Dates: start: 20041004

REACTIONS (1)
  - INTRA-ABDOMINAL HAEMORRHAGE [None]
